FAERS Safety Report 22665979 (Version 3)
Quarter: 2023Q4

REPORT INFORMATION
  Report Type: Report from Study
  Country: US (occurrence: US)
  Receive Date: 20230703
  Receipt Date: 20231117
  Transmission Date: 20240110
  Serious: Yes (Hospitalization)
  Sender: FDA-Public Use
  Company Number: US-PFIZER INC-PV202300080918

PATIENT
  Age: 10 Year
  Sex: Male
  Weight: 45.4 kg

DRUGS (2)
  1. AXITINIB [Suspect]
     Active Substance: AXITINIB
     Dosage: 5 MG OR 2.4 MG/M2 (AGE-BASED DOSING) BID D1-28
     Route: 048
     Dates: start: 20220603, end: 20221220
  2. NIVOLUMAB [Suspect]
     Active Substance: NIVOLUMAB
     Dosage: 480MG D1 OR 240MG/3MG/KG (AGE-BASED DOSING) ON D1,15
     Route: 042
     Dates: start: 20220603, end: 20221129

REACTIONS (3)
  - Pleural effusion [Not Recovered/Not Resolved]
  - Pericardial effusion [Not Recovered/Not Resolved]
  - Ascites [Not Recovered/Not Resolved]

NARRATIVE: CASE EVENT DATE: 20221220
